FAERS Safety Report 10854876 (Version 1)
Quarter: 2015Q1

REPORT INFORMATION
  Report Type: Spontaneous
  Country: US (occurrence: None)
  Receive Date: 20150218
  Receipt Date: 20150218
  Transmission Date: 20150721
  Serious: No
  Sender: FDA-Public Use
  Company Number: None

PATIENT
  Age: 68 Year
  Sex: Male
  Weight: 76 kg

DRUGS (2)
  1. WARFARIN [Suspect]
     Active Substance: WARFARIN
     Indication: HEPATITIS C
     Dosage: 6 MG, OTHER
     Route: 048
     Dates: start: 20121019
  2. LEDIPASVIR/SOFOSBUVIR [Suspect]
     Active Substance: LEDIPASVIR\SOFOSBUVIR
     Indication: ATRIAL FIBRILLATION
     Route: 048
     Dates: start: 20150109

REACTIONS (1)
  - International normalised ratio decreased [None]

NARRATIVE: CASE EVENT DATE: 20150205
